FAERS Safety Report 5850308-8 (Version None)
Quarter: 2008Q3

REPORT INFORMATION
  Report Type: 
  Country: None (occurrence: None)
  Receive Date: 20080819
  Receipt Date: 20080818
  Transmission Date: 20090109
  Serious: Yes (Hospitalization)
  Sender: FDA-Public Use
  Company Number: DE-WYE-G02013208

PATIENT

DRUGS (1)
  1. TREVILOR RETARD [Suspect]
     Dosage: 30 CAPSULES (OVERDOSE AMOUNT 2250 MG)
     Route: 048
     Dates: start: 20080816, end: 20080816

REACTIONS (4)
  - COMA [None]
  - INTENTIONAL OVERDOSE [None]
  - RESPIRATORY FAILURE [None]
  - SUICIDE ATTEMPT [None]
